FAERS Safety Report 4842251-8 (Version None)
Quarter: 2005Q4

REPORT INFORMATION
  Report Type: 
  Country: None (occurrence: None)
  Receive Date: 20051129
  Receipt Date: 20051114
  Transmission Date: 20060501
  Serious: Yes (Other)
  Sender: FDA-Public Use
  Company Number: US_0411107598

PATIENT
  Age: 46 Year
  Sex: Male
  Weight: 124.5 kg

DRUGS (8)
  1. ZYPREXA [Suspect]
     Indication: MAJOR DEPRESSION
     Dosage: 7.5 MG, DAILY (1/D), ORAL
     Route: 048
     Dates: start: 20030711, end: 20031112
  2. TRILEPTAL [Concomitant]
  3. RISPERDAL [Concomitant]
  4. PAXIL [Concomitant]
  5. LEXAPRO [Concomitant]
  6. AMBIEN [Concomitant]
  7. SEROQUEL [Concomitant]
  8. GEODON [Concomitant]

REACTIONS (18)
  - APATHY [None]
  - ASTHENIA [None]
  - BLOOD CHOLESTEROL ABNORMAL [None]
  - BLOOD CHOLESTEROL INCREASED [None]
  - BLOOD TRIGLYCERIDES INCREASED [None]
  - CONDITION AGGRAVATED [None]
  - DEPRESSION [None]
  - DIABETES MELLITUS [None]
  - FATIGUE [None]
  - FEELING OF DESPAIR [None]
  - HYPERTENSION [None]
  - INCREASED APPETITE [None]
  - NEPHROPATHY [None]
  - OBESITY [None]
  - POLLAKIURIA [None]
  - RENAL FAILURE CHRONIC [None]
  - THIRST [None]
  - WEIGHT INCREASED [None]
